FAERS Safety Report 21438273 (Version 2)
Quarter: 2023Q1

REPORT INFORMATION
  Report Type: Spontaneous
  Country: JP (occurrence: JP)
  Receive Date: 20221011
  Receipt Date: 20230209
  Transmission Date: 20230418
  Serious: Yes (Other)
  Sender: FDA-Public Use
  Company Number: JP-SUN PHARMACEUTICAL INDUSTRIES LTD-2022R1-358305

PATIENT
  Age: 60 Year
  Sex: Female

DRUGS (2)
  1. DOXORUBICIN [Suspect]
     Active Substance: DOXORUBICIN
     Indication: Rhabdomyosarcoma
     Dosage: 60 MILLIGRAM/SQ. METER EVERY 3 WEEKS FOR 1 CYCLE
     Route: 065
  2. ERIBULIN [Suspect]
     Active Substance: ERIBULIN
     Indication: Rhabdomyosarcoma
     Dosage: 1.4 MILLIGRAM/SQ. METER EVERY 3 WEEKS FOR 2 CYCLES
     Route: 065

REACTIONS (2)
  - Neoplasm progression [Unknown]
  - Condition aggravated [Unknown]
